FAERS Safety Report 8086610-1 (Version None)
Quarter: 2012Q1

REPORT INFORMATION
  Report Type: 
  Country: None (occurrence: None)
  Receive Date: 20120128
  Receipt Date: 20110517
  Transmission Date: 20120608
  Serious: No
  Sender: FDA-Public Use
  Company Number: US-ABBOTT-11P-163-0726299-00

PATIENT
  Age: 51 Year
  Sex: Male

DRUGS (8)
  1. LISINOPRIL [Concomitant]
     Indication: CARDIAC DISORDER
  2. FELODIPINE [Concomitant]
     Indication: DRUG THERAPY
  3. ASPIRIN [Concomitant]
     Indication: CARDIAC DISORDER
  4. PREVACID [Concomitant]
     Indication: GASTROOESOPHAGEAL REFLUX DISEASE
  5. MULTI-VITAMIN [Concomitant]
     Indication: PRODUCT USED FOR UNKNOWN INDICATION
  6. LIPITOR [Concomitant]
     Indication: BLOOD CHOLESTEROL INCREASED
  7. HUMIRA [Suspect]
     Indication: DERMATITIS
     Dates: start: 20100701
  8. XYZAL [Concomitant]
     Indication: PRURITUS

REACTIONS (3)
  - INJECTION SITE PAIN [None]
  - DRUG DOSE OMISSION [None]
  - DEVICE MALFUNCTION [None]
